FAERS Safety Report 6939975-5 (Version None)
Quarter: 2010Q3

REPORT INFORMATION
  Report Type: 
  Country: None (occurrence: None)
  Receive Date: 20100825
  Receipt Date: 20100817
  Transmission Date: 20110219
  Serious: Yes (Other)
  Sender: FDA-Public Use
  Company Number: ES-PFIZER INC-2010103065

PATIENT
  Age: 61 Year
  Sex: Male

DRUGS (4)
  1. ZARATOR [Suspect]
     Indication: DYSLIPIDAEMIA
     Dosage: 80 MG, 1X/DAY
     Route: 048
     Dates: start: 20071001, end: 20091201
  2. METFORMIN HCL [Concomitant]
     Indication: TYPE 2 DIABETES MELLITUS
     Dosage: 1700 MG/DAY
     Route: 048
  3. INSULATARD [Concomitant]
     Indication: TYPE 2 DIABETES MELLITUS
     Dosage: 34 IU/DAY
     Route: 058
  4. NOVOMIX [Concomitant]
     Indication: TYPE 2 DIABETES MELLITUS
     Dosage: 34 IU/DAY
     Route: 058

REACTIONS (1)
  - SEXUAL DYSFUNCTION [None]
